FAERS Safety Report 10221330 (Version 2)
Quarter: 2014Q2

REPORT INFORMATION
  Report Type: Report from Study
  Country: US (occurrence: US)
  Receive Date: 20140606
  Receipt Date: 20140617
  Transmission Date: 20141212
  Serious: Yes (Hospitalization, Other)
  Sender: FDA-Public Use
  Company Number: US-BAXTER-2014BAX029322

PATIENT
  Sex: Female
  Weight: 45.4 kg

DRUGS (1)
  1. GAMMAGARD LIQUID [Suspect]
     Indication: PRODUCT USED FOR UNKNOWN INDICATION
     Dates: start: 201312, end: 201403

REACTIONS (4)
  - Infection [Unknown]
  - Oropharyngeal blistering [Unknown]
  - General physical health deterioration [Unknown]
  - Drug dose omission [Not Recovered/Not Resolved]
